FAERS Safety Report 5723622-4 (Version None)
Quarter: 2008Q2

REPORT INFORMATION
  Report Type: 
  Country: None (occurrence: None)
  Receive Date: 20080425
  Receipt Date: 20080417
  Transmission Date: 20081010
  Serious: Yes (Other)
  Sender: FDA-Public Use
  Company Number: 2008-02481

PATIENT
  Age: 29 Year
  Sex: Female

DRUGS (3)
  1. VECURONIUM BROMIDE [Suspect]
     Indication: ENDOTRACHEAL INTUBATION
     Dates: start: 19980101, end: 19980101
  2. FENTANYL CITRATE [Concomitant]
  3. PROPOFOL [Concomitant]

REACTIONS (1)
  - ANAPHYLACTIC REACTION [None]
